FAERS Safety Report 18271665 (Version 1)
Quarter: 2020Q3

REPORT INFORMATION
  Report Type: Spontaneous
  Country: US (occurrence: US)
  Receive Date: 20200915
  Receipt Date: 20200915
  Transmission Date: 20201103
  Serious: Yes (Hospitalization, Other)
  Sender: FDA-Public Use
  Company Number: None

PATIENT
  Age: 60 Year
  Sex: Male
  Weight: 95.46 kg

DRUGS (4)
  1. DEXAMETHASONE 6 MG [Concomitant]
     Dates: start: 20200912
  2. ELIQUIS [Concomitant]
     Active Substance: APIXABAN
     Dates: start: 20200914
  3. REMDESIVIR. [Suspect]
     Active Substance: REMDESIVIR
     Indication: COVID-19
     Route: 042
     Dates: start: 20200912, end: 20200914
  4. VENTOLIN HFA [Concomitant]
     Active Substance: ALBUTEROL SULFATE
     Dates: start: 20200914

REACTIONS (3)
  - Aspartate aminotransferase increased [None]
  - Therapy cessation [None]
  - Alanine aminotransferase increased [None]

NARRATIVE: CASE EVENT DATE: 20200915
